FAERS Safety Report 13957362 (Version 1)
Quarter: 2017Q3

REPORT INFORMATION
  Report Type: Spontaneous
  Country: US (occurrence: US)
  Receive Date: 20170911
  Receipt Date: 20170911
  Transmission Date: 20171128
  Serious: Yes (Other)
  Sender: FDA-Public Use
  Company Number: US-MALLINCKRODT-T201600759

PATIENT
  Age: 52 Year
  Sex: Female
  Weight: 48 kg

DRUGS (6)
  1. FENTANYL TRANSDERMAL SYSTEM [Suspect]
     Active Substance: FENTANYL
     Indication: HOSPICE CARE
     Dosage: 100 MCG/HR, 2 PATCHES Q48 HRS
     Route: 062
     Dates: start: 201508
  2. FENTANYL TRANSDERMAL SYSTEM [Suspect]
     Active Substance: FENTANYL
     Dosage: 200 MCG (2 PATCHES), EVERY 48 HOURS
     Route: 062
  3. PROTONIX [Concomitant]
     Active Substance: PANTOPRAZOLE SODIUM
     Dosage: 40 MG
     Route: 042
  4. TPN [Concomitant]
     Active Substance: AMINO ACIDS\DEXTROSE\ELECTROLYTES NOS\SOYBEAN OIL
  5. MORPHINE [Concomitant]
     Active Substance: MORPHINE
     Dosage: LIQUID FORM, AS NEEDED
  6. FENTANYL TRANSDERMAL SYSTEM [Suspect]
     Active Substance: FENTANYL
     Indication: PAIN MANAGEMENT
     Dosage: 200 MCG (2 PATCHES), EVERY 3 DAYS
     Route: 062

REACTIONS (8)
  - Dizziness [Unknown]
  - Seizure [Unknown]
  - Hyperhidrosis [Unknown]
  - Drug withdrawal syndrome [Unknown]
  - Sepsis [Unknown]
  - Drug effect incomplete [Unknown]
  - Product physical issue [Not Recovered/Not Resolved]
  - Product adhesion issue [Unknown]

NARRATIVE: CASE EVENT DATE: 201508
